FAERS Safety Report 13119212 (Version 1)
Quarter: 2017Q1

REPORT INFORMATION
  Report Type: Spontaneous
  Country: US (occurrence: US)
  Receive Date: 20170116
  Receipt Date: 20170116
  Transmission Date: 20170428
  Serious: Yes (Other)
  Sender: FDA-Public Use
  Company Number: US-SA-2017SA004994

PATIENT
  Age: 66 Year
  Sex: Female
  Weight: 70.3 kg

DRUGS (74)
  1. XANAX [Suspect]
     Active Substance: ALPRAZOLAM
     Dosage: 1 TABLET AS NEEDED
     Route: 048
  2. ACTIFED [Suspect]
     Active Substance: PSEUDOEPHEDRINE HYDROCHLORIDE\TRIPROLIDINE HYDROCHLORIDE
     Route: 065
  3. ANTIVERT [Suspect]
     Active Substance: MECLIZINE HYDROCHLORIDE
     Indication: DIZZINESS
     Dosage: AS NECESSARY
     Route: 048
  4. SUDAFED [Suspect]
     Active Substance: PSEUDOEPHEDRINE HYDROCHLORIDE
     Route: 065
  5. ULTRAM [Suspect]
     Active Substance: TRAMADOL HYDROCHLORIDE
     Route: 065
  6. SINGULAIR [Concomitant]
     Active Substance: MONTELUKAST SODIUM
     Route: 065
  7. FOLIC ACID. [Concomitant]
     Active Substance: FOLIC ACID
     Route: 065
  8. LAMICTAL [Concomitant]
     Active Substance: LAMOTRIGINE
     Route: 065
  9. NEXIUM [Concomitant]
     Active Substance: ESOMEPRAZOLE MAGNESIUM
     Route: 065
  10. HUMIRA [Suspect]
     Active Substance: ADALIMUMAB
     Route: 065
  11. IRON [Suspect]
     Active Substance: IRON
     Route: 065
  12. BACTROBAN [Concomitant]
     Active Substance: MUPIROCIN\MUPIROCIN CALCIUM
     Route: 065
  13. TAMIFLU [Concomitant]
     Active Substance: OSELTAMIVIR PHOSPHATE
     Route: 065
  14. PANTHENOL/RETINOL/THIAMINE HYDROCHLORIDE/ASCORBIC ACID/ERGOCALCIFEROL/FOLIC ACID/RIBOFLAVIN/NICOTINA [Concomitant]
     Route: 065
  15. NASOCORT [Concomitant]
     Active Substance: BUDESONIDE
     Route: 065
  16. VICODIN [Concomitant]
     Active Substance: ACETAMINOPHEN\HYDROCODONE BITARTRATE
     Route: 065
  17. PHENERGAN [Concomitant]
     Active Substance: PROMETHAZINE HYDROCHLORIDE
     Route: 065
  18. SYSTANE (HYPROMELLOSE 2910 (4000 MPA.S)) [Concomitant]
     Active Substance: HYPROMELLOSE 2910 (4000 MPA.S)
     Route: 065
  19. ISOPTO TEARS [Concomitant]
     Active Substance: HYPROMELLOSE 2910 (4000 MPA.S)
     Route: 065
  20. ZANAFLEX [Concomitant]
     Active Substance: TIZANIDINE HYDROCHLORIDE
     Route: 065
  21. VITAMIN D3 [Concomitant]
     Active Substance: CHOLECALCIFEROL
     Route: 065
  22. ZINC. [Concomitant]
     Active Substance: ZINC
     Route: 065
  23. ZANTAC [Concomitant]
     Active Substance: RANITIDINE HYDROCHLORIDE
     Route: 065
  24. ENBREL [Suspect]
     Active Substance: ETANERCEPT
     Route: 065
  25. SIMPONI [Suspect]
     Active Substance: GOLIMUMAB
     Route: 065
  26. ISORDIL [Suspect]
     Active Substance: ISOSORBIDE DINITRATE
     Route: 065
  27. AMPICILIN [Suspect]
     Active Substance: AMPICILLIN
     Route: 065
  28. ACTEMRA [Suspect]
     Active Substance: TOCILIZUMAB
     Route: 065
  29. HEPATITIS B VACCINE [Suspect]
     Active Substance: HEPATITIS B VIRUS VACCINE
     Route: 065
  30. VITAMIN D2 [Concomitant]
     Active Substance: ERGOCALCIFEROL
     Route: 065
  31. CELEXA [Concomitant]
     Active Substance: CITALOPRAM HYDROBROMIDE
     Route: 065
  32. SYNTHROID [Concomitant]
     Active Substance: LEVOTHYROXINE SODIUM
     Route: 065
  33. FLEXERIL [Concomitant]
     Active Substance: CYCLOBENZAPRINE HYDROCHLORIDE
     Route: 065
  34. RITUXAN [Suspect]
     Active Substance: RITUXIMAB
     Route: 065
  35. KEFLEX [Suspect]
     Active Substance: CEPHALEXIN
     Route: 065
  36. POTASSIUM [Suspect]
     Active Substance: POTASSIUM
     Route: 065
  37. TYLENOL [Concomitant]
     Active Substance: ACETAMINOPHEN
     Route: 065
  38. TAZOBACTAM/PIPERACILLIN [Concomitant]
     Route: 065
  39. LOPERAMIDE HYDROCHLORIDE. [Concomitant]
     Active Substance: LOPERAMIDE HYDROCHLORIDE
     Route: 065
  40. COLCHICINE. [Suspect]
     Active Substance: COLCHICINE
     Route: 065
  41. DOXYCYCLINE. [Suspect]
     Active Substance: DOXYCYCLINE
     Route: 065
  42. RESTASIS [Concomitant]
     Active Substance: CYCLOSPORINE
     Route: 065
  43. REFRESH [Concomitant]
     Active Substance: UNSPECIFIED INGREDIENT
     Route: 065
  44. HYDROCORTISONE. [Concomitant]
     Active Substance: HYDROCORTISONE
     Route: 065
  45. RUBRAMIN [Concomitant]
     Route: 065
  46. PROTOPIC [Concomitant]
     Active Substance: TACROLIMUS
     Route: 065
  47. LASIX [Suspect]
     Active Substance: FUROSEMIDE
     Route: 065
  48. ZYRTEC [Suspect]
     Active Substance: CETIRIZINE HYDROCHLORIDE
     Dosage: AS NEEDED
     Route: 065
  49. COMPAZINE [Suspect]
     Active Substance: PROCHLORPERAZINE MALEATE
     Route: 065
  50. DILAUDID [Suspect]
     Active Substance: HYDROMORPHONE HYDROCHLORIDE
     Route: 065
  51. METHOTREXATE. [Suspect]
     Active Substance: METHOTREXATE
     Route: 065
  52. VITAMIN D [Concomitant]
     Active Substance: CHOLECALCIFEROL
     Route: 065
  53. MOBIC [Concomitant]
     Active Substance: MELOXICAM
     Route: 065
  54. RETIN-A [Concomitant]
     Active Substance: TRETINOIN
     Route: 065
  55. DELTASONE [Concomitant]
     Active Substance: PREDNISONE
     Route: 065
  56. ARAVA [Suspect]
     Active Substance: LEFLUNOMIDE
     Route: 065
  57. GEODON [Suspect]
     Active Substance: ZIPRASIDONE HYDROCHLORIDE\ZIPRASIDONE MESYLATE
     Route: 065
  58. CIPROFLOXACIN. [Suspect]
     Active Substance: CIPROFLOXACIN
     Route: 065
  59. HYDROCHLOROTHIAZIDE/TRIAMTERENE [Suspect]
     Active Substance: HYDROCHLOROTHIAZIDE\TRIAMTERENE
     Route: 065
  60. ERYTHROMYCIN. [Suspect]
     Active Substance: ERYTHROMYCIN
     Route: 065
  61. SULFASALAZINE. [Suspect]
     Active Substance: SULFASALAZINE
     Route: 065
  62. PREVACID [Concomitant]
     Active Substance: LANSOPRAZOLE
     Route: 065
  63. FOSAMAX [Concomitant]
     Active Substance: ALENDRONATE SODIUM
     Route: 065
  64. CALCIUM CARBONATE. [Concomitant]
     Active Substance: CALCIUM CARBONATE
     Route: 065
  65. VITAMIN B12 [Concomitant]
     Active Substance: CYANOCOBALAMIN
     Route: 065
  66. PLAQUENIL [Suspect]
     Active Substance: HYDROXYCHLOROQUINE SULFATE
     Route: 065
  67. LYRICA [Suspect]
     Active Substance: PREGABALIN
     Route: 048
  68. CYCLOSPORINE. [Suspect]
     Active Substance: CYCLOSPORINE
     Route: 065
  69. DIAMOX SEQUELS [Suspect]
     Active Substance: ACETAZOLAMIDE
     Route: 065
  70. TRILEPTAL [Suspect]
     Active Substance: OXCARBAZEPINE
     Route: 065
  71. ZENPEP [Suspect]
     Active Substance: PANCRELIPASE AMYLASE\PANCRELIPASE LIPASE\PANCRELIPASE PROTEASE
     Route: 065
  72. ZOLOFT [Concomitant]
     Active Substance: SERTRALINE HYDROCHLORIDE
     Route: 065
  73. ADVAIR HFA [Concomitant]
     Active Substance: FLUTICASONE PROPIONATE\SALMETEROL XINAFOATE
     Route: 065
  74. ZADITOR [Concomitant]
     Active Substance: KETOTIFEN FUMARATE
     Route: 065

REACTIONS (52)
  - Contusion [Unknown]
  - Pain [Unknown]
  - Tenderness [Unknown]
  - Dysphoria [Unknown]
  - Fatigue [Unknown]
  - Skin disorder [Unknown]
  - Constipation [Unknown]
  - Musculoskeletal stiffness [Unknown]
  - Dizziness [Unknown]
  - Thinking abnormal [Unknown]
  - Hallucination [Unknown]
  - Oral pain [Unknown]
  - Abdominal pain [Unknown]
  - Joint swelling [Unknown]
  - Hypoaesthesia [Unknown]
  - Rash [Unknown]
  - Blister [Unknown]
  - Photophobia [Unknown]
  - Drug intolerance [Unknown]
  - Dry skin [Unknown]
  - Arthralgia [Unknown]
  - Headache [Unknown]
  - Sjogren^s syndrome [Unknown]
  - Ear pain [Unknown]
  - Visual impairment [Unknown]
  - Interstitial lung disease [Unknown]
  - Wheezing [Unknown]
  - Nausea [Unknown]
  - Haemorrhagic diathesis [Unknown]
  - Sneezing [Unknown]
  - Dysphagia [Unknown]
  - Anaphylactic reaction [Unknown]
  - Arthritis infective [Unknown]
  - Osteoarthritis [Unknown]
  - Chills [Unknown]
  - Appetite disorder [Unknown]
  - Pruritus [Unknown]
  - Dyspnoea [Unknown]
  - Back pain [Unknown]
  - Asthenia [Unknown]
  - Neck pain [Unknown]
  - Rheumatoid arthritis [Unknown]
  - Oedema [Unknown]
  - Skin warm [Unknown]
  - Erythema [Unknown]
  - Abdominal discomfort [Unknown]
  - Rhinorrhoea [Unknown]
  - Gait disturbance [Unknown]
  - Drug hypersensitivity [Unknown]
  - Diarrhoea [Unknown]
  - Myalgia [Unknown]
  - Vomiting [Unknown]

NARRATIVE: CASE EVENT DATE: 20110111
